FAERS Safety Report 8380677-9 (Version None)
Quarter: 2012Q2

REPORT INFORMATION
  Report Type: 
  Country: None (occurrence: None)
  Receive Date: 20120515
  Receipt Date: 20120503
  Transmission Date: 20120825
  Serious: Yes (Hospitalization)
  Sender: FDA-Public Use
  Company Number: 2012032221

PATIENT
  Sex: Female
  Weight: 87.5442 kg

DRUGS (10)
  1. KALBITOR [Suspect]
     Indication: HEREDITARY ANGIOEDEMA
     Dosage: (30 ML TOTAL, 30 ML AS A SINGLE DOSE)
     Dates: start: 20120323, end: 20120323
  2. BERINERT [Suspect]
     Indication: HEREDITARY ANGIOEDEMA
     Dosage: (INTRAVENOUS (NOT OTHERWISE SPECIFIED))
     Route: 042
     Dates: start: 20120322, end: 20120322
  3. CORTICOSTEROIDS (CORTICOSTEROIDS) [Suspect]
     Indication: HEREDITARY ANGIOEDEMA
     Dosage: (INTRAVENOUS (NOT OTHERWISE SPECIFIED))
     Route: 042
     Dates: start: 20120301, end: 20120301
  4. NEXIUM [Concomitant]
  5. PROAIR (SALBUTAMOL SULFATE) [Concomitant]
  6. CORTICOSTEROIDS (CORTICOSTEROIDS) [Suspect]
     Indication: HEREDITARY ANGIOEDEMA
     Dosage: (ORAL)
     Route: 048
     Dates: start: 20120301, end: 20120301
  7. DIVIGEL (ESTRADIOL) [Concomitant]
  8. QVAR [Concomitant]
  9. MULTIVITAMIN (MULTIVITAMIN /00831701/) [Concomitant]
  10. LIPITOR [Concomitant]

REACTIONS (8)
  - MUSCULOSKELETAL PAIN [None]
  - FATIGUE [None]
  - ANXIETY [None]
  - SENSORY DISTURBANCE [None]
  - ASTHENIA [None]
  - ARTHRALGIA [None]
  - PAIN IN EXTREMITY [None]
  - CONDITION AGGRAVATED [None]
